FAERS Safety Report 11289944 (Version 1)
Quarter: 2015Q3

REPORT INFORMATION
  Report Type: Spontaneous
  Country: US (occurrence: US)
  Receive Date: 20150721
  Receipt Date: 20150721
  Transmission Date: 20151125
  Serious: Yes (Hospitalization)
  Sender: FDA-Public Use
  Company Number: US-ACTELION-A-NJ2015-120502

PATIENT
  Age: 66 Year
  Sex: Female

DRUGS (16)
  1. METOPROLOL [Concomitant]
     Active Substance: METOPROLOL
  2. PHENYTOIN. [Concomitant]
     Active Substance: PHENYTOIN
  3. MUPIROCIN. [Concomitant]
     Active Substance: MUPIROCIN
  4. LAMOTRIGINE. [Concomitant]
     Active Substance: LAMOTRIGINE
  5. TORSEMIDE. [Concomitant]
     Active Substance: TORSEMIDE
     Dosage: UNK
  6. SPIRIVA [Concomitant]
     Active Substance: TIOTROPIUM BROMIDE MONOHYDRATE
     Dosage: UNK
  7. CELEXA [Concomitant]
     Active Substance: CITALOPRAM HYDROBROMIDE
     Dosage: 20 MG, QD
  8. ALBUTEROL. [Concomitant]
     Active Substance: ALBUTEROL
  9. TYLENOL [Concomitant]
     Active Substance: ACETAMINOPHEN
  10. COUMADIN [Concomitant]
     Active Substance: WARFARIN SODIUM
  11. FUROSEMIDE. [Concomitant]
     Active Substance: FUROSEMIDE
  12. LOPERAMIDE [Concomitant]
     Active Substance: LOPERAMIDE
     Dosage: 2 MG, UNK
  13. VELETRI [Suspect]
     Active Substance: EPOPROSTENOL
     Indication: PULMONARY ARTERIAL HYPERTENSION
     Dosage: 23 NG/KG, PER MIN
     Route: 042
     Dates: start: 20141117
  14. PANTOPRAZOLE [Concomitant]
     Active Substance: PANTOPRAZOLE SODIUM
  15. MONTELUKAST [Concomitant]
     Active Substance: MONTELUKAST SODIUM
     Dosage: 10 MG, UNK
  16. FLUTICASONE [Concomitant]
     Active Substance: FLUTICASONE\FLUTICASONE PROPIONATE

REACTIONS (9)
  - Hypotension [Recovered/Resolved]
  - Dyspnoea [Unknown]
  - Dyspnoea exertional [Unknown]
  - Swelling [Recovering/Resolving]
  - Fluid retention [Recovering/Resolving]
  - Oedema peripheral [Unknown]
  - Condition aggravated [Unknown]
  - Fall [Recovered/Resolved]
  - Dizziness [Unknown]

NARRATIVE: CASE EVENT DATE: 20150628
